FAERS Safety Report 7595552-7 (Version None)
Quarter: 2011Q3

REPORT INFORMATION
  Report Type: 
  Country: None (occurrence: None)
  Receive Date: 20110707
  Receipt Date: 20110615
  Transmission Date: 20111222
  Serious: Yes (Hospitalization)
  Sender: FDA-Public Use
  Company Number: US-GLAXOSMITHKLINE-A0877040A

PATIENT
  Sex: Male
  Weight: 89.1 kg

DRUGS (13)
  1. ASPIRIN [Concomitant]
  2. LIPITOR [Concomitant]
  3. PRINIVIL [Concomitant]
  4. DIOVAN [Concomitant]
  5. AVANDIA [Suspect]
     Indication: DIABETES MELLITUS
     Dosage: 4MG TWICE PER DAY
     Route: 048
     Dates: start: 20050301, end: 20070301
  6. LISINOPRIL [Concomitant]
  7. COREG [Concomitant]
  8. METOPROLOL TARTRATE [Concomitant]
  9. AVANDAMET [Suspect]
     Indication: TYPE 2 DIABETES MELLITUS
     Route: 048
     Dates: start: 20041201, end: 20050301
  10. PREVACID [Concomitant]
  11. LASIX [Concomitant]
  12. METFORMIN HCL [Concomitant]
  13. LOTREL [Concomitant]

REACTIONS (7)
  - CARDIAC FAILURE CONGESTIVE [None]
  - CARDIAC ARREST [None]
  - MYOCARDIAL INFARCTION [None]
  - SICK SINUS SYNDROME [None]
  - TRANSIENT ISCHAEMIC ATTACK [None]
  - ATRIAL FIBRILLATION [None]
  - CORONARY ARTERY DISEASE [None]
